FAERS Safety Report 5281191-X (Version None)
Quarter: 2007Q1

REPORT INFORMATION
  Report Type: 
  Country: None (occurrence: None)
  Receive Date: 20070323
  Receipt Date: 20070307
  Transmission Date: 20070707
  Serious: Yes (Hospitalization)
  Sender: FDA-Public Use
  Company Number: DSA_29608_2007

PATIENT
  Age: 76 Year
  Sex: Male

DRUGS (10)
  1. DILZEM           /00489701 [Suspect]
     Dosage: 90 MG Q DAY PO
     Route: 048
  2. NAVELBINE [Suspect]
     Indication: LUNG NEOPLASM MALIGNANT
     Dosage: DF IV
     Route: 042
     Dates: start: 20060406, end: 20060412
  3. NAVELBINE [Suspect]
     Indication: LUNG NEOPLASM MALIGNANT
     Dosage: DF IV
     Route: 042
     Dates: start: 20060412, end: 20060412
  4. CARBOPLATIN [Suspect]
     Indication: LUNG NEOPLASM MALIGNANT
     Dosage: DF IV
     Route: 042
     Dates: start: 20060406, end: 20060412
  5. CARBOPLATIN [Suspect]
     Indication: LUNG NEOPLASM MALIGNANT
     Dosage: DF IV
     Route: 042
     Dates: start: 20060412, end: 20060412
  6. GEMZAR [Suspect]
     Indication: LUNG NEOPLASM MALIGNANT
     Dosage: DF IV
     Route: 042
     Dates: start: 20060518, end: 20060101
  7. OMEPRAZOLE [Suspect]
     Dosage: 20 MG Q DAY PO
     Route: 048
  8. ASPIRIN [Concomitant]
  9. COVERSUM [Concomitant]
  10. NITRODERM [Concomitant]

REACTIONS (6)
  - AGRANULOCYTOSIS [None]
  - DIARRHOEA HAEMORRHAGIC [None]
  - DISEASE RECURRENCE [None]
  - LARGE INTESTINAL ULCER [None]
  - PYREXIA [None]
  - VOMITING [None]
